FAERS Safety Report 15347240 (Version 1)
Quarter: 2018Q3

REPORT INFORMATION
  Report Type: Spontaneous
  Country: US (occurrence: US)
  Receive Date: 20180904
  Receipt Date: 20180904
  Transmission Date: 20181010
  Serious: Yes (Other)
  Sender: FDA-Public Use
  Company Number: US-SA-2017SA261730

PATIENT
  Age: 63 Year
  Sex: Female
  Weight: 81 kg

DRUGS (7)
  1. TAXOTERE [Suspect]
     Active Substance: DOCETAXEL
     Indication: BREAST CANCER FEMALE
     Dosage: UNK UNK,QCY
     Route: 042
     Dates: start: 20120801, end: 20120801
  2. DOXORUBICIN [Concomitant]
     Active Substance: DOXORUBICIN
  3. LEVOTHYROXINE. [Concomitant]
     Active Substance: LEVOTHYROXINE
  4. CYCLOPHOSPHAMIDE. [Concomitant]
     Active Substance: CYCLOPHOSPHAMIDE
  5. PACLITAXEL. [Concomitant]
     Active Substance: PACLITAXEL
  6. PREMARIN [Concomitant]
     Active Substance: ESTROGENS, CONJUGATED
  7. TAXOTERE [Suspect]
     Active Substance: DOCETAXEL
     Dosage: UNK

REACTIONS (2)
  - Alopecia [Recovering/Resolving]
  - Psychological trauma [Unknown]

NARRATIVE: CASE EVENT DATE: 20130201
